FAERS Safety Report 6664528-6 (Version None)
Quarter: 2010Q2

REPORT INFORMATION
  Report Type: 
  Country: None (occurrence: None)
  Receive Date: 20100401
  Receipt Date: 20100324
  Transmission Date: 20101027
  Serious: Yes (Other)
  Sender: FDA-Public Use
  Company Number: FR-BAXTER-2010BH001078

PATIENT
  Sex: Male
  Weight: 68 kg

DRUGS (14)
  1. EXTRANEAL [Suspect]
     Indication: PERITONEAL DIALYSIS
     Route: 033
     Dates: start: 20091028
  2. EXTRANEAL [Suspect]
     Indication: RENAL FAILURE CHRONIC
     Route: 033
     Dates: start: 20091028
  3. PHYSIOSOL IN PLASTIC CONTAINER [Suspect]
     Indication: PERITONEAL DIALYSIS
     Route: 033
     Dates: start: 20091102
  4. PHYSIOSOL IN PLASTIC CONTAINER [Suspect]
     Indication: RENAL FAILURE CHRONIC
     Route: 033
     Dates: start: 20091102
  5. PHYSIOSOL IN PLASTIC CONTAINER [Suspect]
     Route: 033
     Dates: start: 20091102
  6. PHYSIOSOL IN PLASTIC CONTAINER [Suspect]
     Route: 033
     Dates: start: 20091102
  7. IRBESARTAN [Concomitant]
     Indication: MALIGNANT HYPERTENSION
     Route: 048
     Dates: start: 20091001
  8. ENALAPRIL MALEATE [Concomitant]
     Indication: MALIGNANT HYPERTENSION
     Route: 048
     Dates: start: 20091001
  9. AMLOR [Concomitant]
     Indication: MALIGNANT HYPERTENSION
     Route: 048
     Dates: start: 20091001
  10. RENAGEL [Concomitant]
     Indication: HYPERPHOSPHATAEMIA
     Route: 048
     Dates: start: 20091001
  11. TENORMIN [Concomitant]
     Indication: DRUG USE FOR UNKNOWN INDICATION
     Route: 065
     Dates: start: 20091209
  12. LASIX SPECIAL [Concomitant]
     Indication: DRUG USE FOR UNKNOWN INDICATION
     Route: 065
     Dates: start: 20091103
  13. TAHOR [Concomitant]
     Indication: DRUG USE FOR UNKNOWN INDICATION
     Route: 065
     Dates: start: 20091210
  14. FOSRENOL [Concomitant]
     Indication: DRUG USE FOR UNKNOWN INDICATION
     Route: 065
     Dates: start: 20091222

REACTIONS (4)
  - ABDOMINAL DISTENSION [None]
  - CONVULSION [None]
  - PERITONEAL DIALYSIS COMPLICATION [None]
  - PERITONITIS [None]
